FAERS Safety Report 8542638-6 (Version None)
Quarter: 2012Q3

REPORT INFORMATION
  Report Type: 
  Country: None (occurrence: None)
  Receive Date: 20120727
  Receipt Date: 20120720
  Transmission Date: 20120928
  Serious: Yes (Hospitalization)
  Sender: FDA-Public Use
  Company Number: FR-AMGEN-FRASP2012045087

PATIENT
  Age: 73 Year
  Sex: Female

DRUGS (10)
  1. LEVOTHYROXINE SODIUM [Concomitant]
  2. RITUXIMAB [Concomitant]
  3. DOXORUBICIN HYDROCHLORIDE [Concomitant]
  4. MOVICOL                            /01625101/ [Concomitant]
  5. ARANESP [Suspect]
     Indication: ANAEMIA
     Dosage: UNK
     Dates: start: 20120709, end: 20120709
  6. CYCLOPHOSPHAMIDE [Concomitant]
  7. PREDNISONE [Concomitant]
  8. ONCOVIN [Concomitant]
  9. RABEPRAZOLE SODIUM [Concomitant]
  10. STABLON [Concomitant]

REACTIONS (3)
  - PYREXIA [None]
  - MALAISE [None]
  - CYANOSIS [None]
